FAERS Safety Report 8756738 (Version 1)
Quarter: 2012Q4

REPORT INFORMATION
  Report Type: 
  Country: CA (occurrence: CA)
  Receive Date: 20120828
  Receipt Date: 20120828
  Transmission Date: 20130627
  Serious: Yes (Death)
  Sender: FDA-Public Use
  Company Number: CA-JNJFOC-20120812058

PATIENT
  Age: 18 Year
  Sex: Female

DRUGS (2)
  1. CONCERTA [Suspect]
     Indication: ATTENTION DEFICIT/HYPERACTIVITY DISORDER
     Route: 048
  2. YASMIN [Suspect]
     Indication: CONTRACEPTION
     Route: 065

REACTIONS (1)
  - Cerebral venous thrombosis [Fatal]
